FAERS Safety Report 10589922 (Version 1)
Quarter: 2014Q4

REPORT INFORMATION
  Report Type: Spontaneous
  Country: US (occurrence: None)
  Receive Date: 20141117
  Receipt Date: 20141117
  Transmission Date: 20150529
  Serious: Yes (Life-Threatening)
  Sender: FDA-Public Use
  Company Number: None

PATIENT
  Age: 82 Year
  Sex: Male
  Weight: 61.6 kg

DRUGS (1)
  1. MEGESTROL [Suspect]
     Active Substance: MEGESTROL
     Indication: INCREASED APPETITE
     Route: 048
     Dates: start: 20141029, end: 20141113

REACTIONS (1)
  - Pulmonary embolism [None]

NARRATIVE: CASE EVENT DATE: 20141110
